FAERS Safety Report 6892252-3 (Version None)
Quarter: 2010Q3

REPORT INFORMATION
  Report Type: 
  Country: None (occurrence: None)
  Receive Date: 20100731
  Receipt Date: 20080305
  Transmission Date: 20110219
  Serious: Yes (Other)
  Sender: FDA-Public Use
  Company Number: US-PFIZER INC-2007093387

PATIENT
  Sex: Male
  Weight: 78.5 kg

DRUGS (6)
  1. CAVERJECT [Suspect]
     Indication: ERECTILE DYSFUNCTION
     Dates: start: 20071001
  2. LIPITOR [Concomitant]
  3. CARDURA [Concomitant]
  4. ACETYLSALICYLIC ACID SRT [Concomitant]
  5. CITRUCEL [Concomitant]
  6. CENTRUM SILVER [Concomitant]

REACTIONS (3)
  - DEVICE FAILURE [None]
  - INJECTION SITE HAEMATOMA [None]
  - INJECTION SITE HAEMORRHAGE [None]
